FAERS Safety Report 15283994 (Version 5)
Quarter: 2020Q4

REPORT INFORMATION
  Report Type: Report from Study
  Country: MX (occurrence: MX)
  Receive Date: 20180816
  Receipt Date: 20201028
  Transmission Date: 20210113
  Serious: Yes (Other)
  Sender: FDA-Public Use
  Company Number: PHHY2018MX073952

PATIENT
  Age: 68 Year
  Sex: Female
  Weight: 79 kg

DRUGS (6)
  1. AZARGA [Suspect]
     Active Substance: BRINZOLAMIDE\TIMOLOL MALEATE
     Indication: GLAUCOMA
     Dosage: 10 MG, QD (2 DROPS IN EACH EYE)
     Route: 047
     Dates: start: 1980
  2. NEXIUM [Concomitant]
     Active Substance: ESOMEPRAZOLE MAGNESIUM
     Indication: GASTRITIS
     Dosage: 40 MG, QD (MANY YEARS AGO)
     Route: 048
  3. ARLUY [Concomitant]
     Indication: IRRITABLE BOWEL SYNDROME
     Dosage: 200 MG, BID (IN THE MORNING AND NIGHT)
     Route: 048
     Dates: start: 1995
  4. COSENTYX [Suspect]
     Active Substance: SECUKINUMAB
     Indication: PSORIATIC ARTHROPATHY
     Dosage: 150 MG, QW (EVERY 8 DAYS DURING 4 WEEKS(STARTED: 2 YEARS AGO)
     Route: 058
     Dates: end: 201909
  5. SOPHIA [Concomitant]
     Indication: GLAUCOMA
     Dosage: 0.5 MG, QD
     Route: 047
  6. AZARGA [Suspect]
     Active Substance: BRINZOLAMIDE\TIMOLOL MALEATE
     Dosage: 5 MG, QD (2 DROPS IN EACH EYE)
     Route: 047
     Dates: start: 1980

REACTIONS (17)
  - Tendonitis [Unknown]
  - Neuropathy peripheral [Recovered/Resolved]
  - COVID-19 [Recovering/Resolving]
  - Major depression [Recovering/Resolving]
  - Ear pain [Unknown]
  - Pharyngitis [Recovered/Resolved]
  - COVID-19 [Recovered/Resolved]
  - Asthenia [Recovered/Resolved]
  - Headache [Not Recovered/Not Resolved]
  - Depression [Not Recovered/Not Resolved]
  - Decreased immune responsiveness [Unknown]
  - Hypertension [Not Recovered/Not Resolved]
  - Respiratory disorder [Unknown]
  - Pulmonary arterial pressure [Recovering/Resolving]
  - Neck pain [Unknown]
  - Product prescribing issue [Unknown]
  - Anxiety [Not Recovered/Not Resolved]

NARRATIVE: CASE EVENT DATE: 201908
